FAERS Safety Report 10458258 (Version 1)
Quarter: 2014Q3

REPORT INFORMATION
  Report Type: Spontaneous
  Country: CA (occurrence: DE)
  Receive Date: 20140917
  Receipt Date: 20140917
  Transmission Date: 20150326
  Serious: Yes (Congenital Anomaly, Other)
  Sender: FDA-Public Use
  Company Number: CA-BIOGENIDEC-2014BI093913

PATIENT
  Sex: Male

DRUGS (1)
  1. TYSABRI [Suspect]
     Active Substance: NATALIZUMAB
     Indication: MATERNAL EXPOSURE TIMING UNSPECIFIED
     Route: 064

REACTIONS (6)
  - Hepatomegaly [Unknown]
  - Renal failure [Unknown]
  - Hepatic failure [Unknown]
  - Neuroblastoma [Unknown]
  - Developmental delay [Unknown]
  - Sepsis [Unknown]
